FAERS Safety Report 25342256 (Version 1)
Quarter: 2025Q2

REPORT INFORMATION
  Report Type: Spontaneous
  Country: HR (occurrence: HR)
  Receive Date: 20250521
  Receipt Date: 20250521
  Transmission Date: 20250716
  Serious: Yes (Life-Threatening, Hospitalization, Disabling, Other)
  Sender: ROCHE
  Company Number: HR-ROCHE-10000287172

PATIENT

DRUGS (2)
  1. COLUMVI [Suspect]
     Active Substance: GLOFITAMAB-GXBM
     Indication: Diffuse large B-cell lymphoma
     Route: 065
  2. TOCILIZUMAB [Suspect]
     Active Substance: TOCILIZUMAB
     Indication: Cytokine release syndrome
     Route: 058

REACTIONS (7)
  - COVID-19 [Unknown]
  - Coagulopathy [Unknown]
  - Cytokine release syndrome [Unknown]
  - Epistaxis [Unknown]
  - Blood fibrinogen decreased [Unknown]
  - Coagulation factor XIII level decreased [Unknown]
  - Factor XI deficiency [Unknown]
